FAERS Safety Report 23045811 (Version 1)
Quarter: 2023Q4

REPORT INFORMATION
  Report Type: Spontaneous
  Country: CN (occurrence: CN)
  Receive Date: 20231009
  Receipt Date: 20231009
  Transmission Date: 20240109
  Serious: Yes (Other)
  Sender: FDA-Public Use
  Company Number: CN-BAYER-2023A141151

PATIENT
  Age: 60 Year
  Sex: Female
  Weight: 41 kg

DRUGS (2)
  1. ULTRAVIST [Suspect]
     Active Substance: IOPROMIDE
     Indication: Computerised tomogram kidney
     Dosage: 45 ML, ONCE
     Route: 042
     Dates: start: 20230923, end: 20230923
  2. ULTRAVIST [Suspect]
     Active Substance: IOPROMIDE
     Indication: Renal cyst

REACTIONS (7)
  - Mouth swelling [Recovering/Resolving]
  - Lip swelling [Recovering/Resolving]
  - Oxygen saturation decreased [Recovering/Resolving]
  - Pruritus [Recovering/Resolving]
  - Urticaria [Recovering/Resolving]
  - Swelling of eyelid [Recovering/Resolving]
  - Erythema [Recovering/Resolving]

NARRATIVE: CASE EVENT DATE: 20230923
